FAERS Safety Report 5924132-1 (Version None)
Quarter: 2008Q4

REPORT INFORMATION
  Report Type: 
  Country: None (occurrence: None)
  Receive Date: 20081020
  Receipt Date: 20081008
  Transmission Date: 20090506
  Serious: Yes (Hospitalization)
  Sender: FDA-Public Use
  Company Number: UA-GENENTECH-262889

PATIENT
  Sex: Female

DRUGS (6)
  1. SOMATROPIN [Suspect]
     Indication: TURNER'S SYNDROME
     Dosage: 2.1 MG, QD
     Route: 058
     Dates: start: 20070912, end: 20080204
  2. NO-SPA [Concomitant]
     Indication: PAIN
     Dosage: 120 MG, QD
     Route: 048
     Dates: start: 20080206, end: 20080214
  3. NO-SPA [Concomitant]
     Indication: MUSCLE SPASMS
  4. MAGNESIUM SUPPLEMENT [Concomitant]
     Indication: POISONING
     Dosage: 150 MG, QD
     Route: 048
     Dates: start: 20080206, end: 20080222
  5. MAGNESIUM SUPPLEMENT [Concomitant]
     Indication: INFLAMMATION
  6. CONCOMITANT DRUG [Concomitant]
     Indication: DRUG USE FOR UNKNOWN INDICATION

REACTIONS (1)
  - PYELONEPHRITIS ACUTE [None]
